FAERS Safety Report 8128950-3 (Version None)
Quarter: 2012Q1

REPORT INFORMATION
  Report Type: 
  Country: None (occurrence: None)
  Receive Date: 20120210
  Receipt Date: 20110620
  Transmission Date: 20120608
  Serious: No
  Sender: FDA-Public Use
  Company Number: US-BRISTOL-MYERS SQUIBB COMPANY-15843097

PATIENT
  Age: 62 Year
  Sex: Female

DRUGS (7)
  1. TRICOR [Concomitant]
  2. PREVACID [Concomitant]
  3. ASPIRIN [Concomitant]
  4. ATENOLOL [Concomitant]
  5. ORENCIA [Suspect]
     Dosage: NO OF DOSE:2
  6. PREDNISONE TAB [Concomitant]
  7. LISINOPRIL [Concomitant]

REACTIONS (3)
  - SINUSITIS [None]
  - FATIGUE [None]
  - PRODUCTIVE COUGH [None]
